FAERS Safety Report 8914635 (Version 3)
Quarter: 2013Q1

REPORT INFORMATION
  Report Type: Report from Study
  Country: US (occurrence: US)
  Receive Date: 20121119
  Receipt Date: 20130206
  Transmission Date: 20140127
  Serious: Yes (Death, Other)
  Sender: FDA-Public Use
  Company Number: US-BAYER-2012-083771

PATIENT
  Age: 52 Year
  Sex: Male

DRUGS (2)
  1. NEXAVAR [Suspect]
     Indication: HEPATIC CANCER
     Dosage: 400 MG, BID
     Route: 048
     Dates: start: 20120810, end: 20121125
  2. NEXAVAR [Suspect]
     Indication: HEPATIC CANCER
     Dosage: 2 TABS DAILY

REACTIONS (21)
  - Hepatocellular carcinoma [Fatal]
  - Dizziness [None]
  - Skin lesion [None]
  - Dizziness [None]
  - Decreased appetite [None]
  - Constipation [Not Recovered/Not Resolved]
  - Fatigue [None]
  - Asthenia [None]
  - Dizziness [None]
  - Balance disorder [None]
  - Erythema [None]
  - Ocular hyperaemia [None]
  - Eye pruritus [None]
  - Nasal discomfort [None]
  - Pruritus [None]
  - Diarrhoea [Not Recovered/Not Resolved]
  - Insomnia [None]
  - Arthralgia [Recovered/Resolved]
  - Rash vesicular [Not Recovered/Not Resolved]
  - Gait disturbance [None]
  - Abdominal pain lower [Not Recovered/Not Resolved]
